FAERS Safety Report 5984546-0 (Version None)
Quarter: 2008Q4

REPORT INFORMATION
  Report Type: 
  Country: None (occurrence: None)
  Receive Date: 20081202
  Receipt Date: 20081117
  Transmission Date: 20090506
  Serious: No
  Sender: FDA-Public Use
  Company Number: 2008S1020681

PATIENT
  Age: 86 Year
  Sex: Male

DRUGS (5)
  1. WARFARIN SODIUM [Suspect]
     Indication: ATRIAL FIBRILLATION
     Dosage: ORAL
     Route: 048
     Dates: start: 20080403, end: 20080922
  2. WARFARIN SODIUM [Suspect]
     Indication: ATRIAL FIBRILLATION
     Dosage: ORAL
     Route: 048
     Dates: start: 20080831, end: 20080922
  3. AMIODARONE HCL [Concomitant]
  4. BUMETANIDE [Concomitant]
  5. DIGOXIN [Concomitant]

REACTIONS (3)
  - MOUTH HAEMORRHAGE [None]
  - TONGUE ULCERATION [None]
  - WEIGHT DECREASED [None]
